FAERS Safety Report 8878931 (Version 1)
Quarter: 2012Q4

REPORT INFORMATION
  Report Type: 
  Country: US (occurrence: US)
  Receive Date: 20121026
  Receipt Date: 20121026
  Transmission Date: 20130627
  Serious: Yes (Death, Life-Threatening, Other)
  Sender: FDA-Public Use
  Company Number: US-ROCHE-1133807

PATIENT
  Sex: Male

DRUGS (2)
  1. RAPTIVA [Suspect]
     Indication: PSORIASIS
     Route: 030
     Dates: start: 20051007, end: 20060316
  2. RAPTIVA [Suspect]
     Indication: PUSTULAR PSORIASIS

REACTIONS (6)
  - Death [Fatal]
  - Cardiac failure congestive [Unknown]
  - Infection [Unknown]
  - Oedema peripheral [Unknown]
  - Pruritus [Unknown]
  - Pain [Unknown]
